FAERS Safety Report 25624274 (Version 1)
Quarter: 2025Q3

REPORT INFORMATION
  Report Type: Spontaneous
  Country: US (occurrence: US)
  Receive Date: 20250730
  Receipt Date: 20250730
  Transmission Date: 20251020
  Serious: Yes (Other)
  Sender: TAKEDA
  Company Number: US-TAKEDA-2025TUS065998

PATIENT
  Age: 31 Year
  Sex: Female

DRUGS (1)
  1. COLCHICINE [Suspect]
     Active Substance: COLCHICINE
     Indication: Product used for unknown indication

REACTIONS (7)
  - Gastrointestinal toxicity [Unknown]
  - Metabolic acidosis [Unknown]
  - Rhabdomyolysis [Unknown]
  - Pancytopenia [Unknown]
  - Liver injury [Unknown]
  - Toxicity to various agents [Unknown]
  - Intentional overdose [Unknown]
